FAERS Safety Report 10919192 (Version 1)
Quarter: 2015Q1

REPORT INFORMATION
  Report Type: Spontaneous
  Country: US (occurrence: US)
  Receive Date: 20150316
  Receipt Date: 20150316
  Transmission Date: 20150721
  Serious: Yes (Other)
  Sender: FDA-Public Use
  Company Number: US-MYLANLABS-2015M1007440

PATIENT

DRUGS (1)
  1. LISINOPRIL TABLETS, USP [Suspect]
     Active Substance: LISINOPRIL
     Dosage: UNK MG, UNK

REACTIONS (1)
  - Coeliac disease [Not Recovered/Not Resolved]
